FAERS Safety Report 5077069-7 (Version None)
Quarter: 2006Q3

REPORT INFORMATION
  Report Type: 
  Country: None (occurrence: None)
  Receive Date: 20060810
  Receipt Date: 20040317
  Transmission Date: 20061208
  Serious: Yes (Other)
  Sender: FDA-Public Use
  Company Number: US-GLAXOSMITHKLINE-A0504387A

PATIENT
  Age: 26 Year
  Sex: Female

DRUGS (2)
  1. PAXIL [Suspect]
     Indication: DEPRESSION
     Route: 048
  2. WELLBUTRIN [Concomitant]
     Indication: DEPRESSION
     Dosage: 300MG PER DAY
     Route: 048

REACTIONS (4)
  - DEPENDENCE [None]
  - DRUG WITHDRAWAL SYNDROME [None]
  - DYSPEPSIA [None]
  - WEIGHT INCREASED [None]
